FAERS Safety Report 6046951-6 (Version None)
Quarter: 2009Q1

REPORT INFORMATION
  Report Type: 
  Country: None (occurrence: None)
  Receive Date: 20090122
  Receipt Date: 20090116
  Transmission Date: 20090719
  Serious: Yes (Death, Other)
  Sender: FDA-Public Use
  Company Number: US-CELGENEUS-163-50794-08110949

PATIENT
  Sex: Female

DRUGS (8)
  1. VIDAZA [Suspect]
     Indication: MULTIPLE MYELOMA
     Route: 065
     Dates: start: 20071112, end: 20080411
  2. VIDAZA [Suspect]
     Indication: MYELODYSPLASTIC SYNDROME
  3. GLUCOSAMINE [Concomitant]
     Indication: DRUG USE FOR UNKNOWN INDICATION
     Route: 048
  4. GARLIC [Concomitant]
     Indication: DRUG USE FOR UNKNOWN INDICATION
     Route: 048
  5. LORAZEPAM [Concomitant]
     Indication: DRUG USE FOR UNKNOWN INDICATION
     Route: 048
  6. LEVOTHYROXINE SODIUM [Concomitant]
     Indication: DRUG USE FOR UNKNOWN INDICATION
     Route: 048
     Dates: start: 20071219
  7. FUROSEMIDE [Concomitant]
     Indication: DRUG USE FOR UNKNOWN INDICATION
     Route: 048
     Dates: start: 20071231
  8. SPIRONOLACTONE [Concomitant]
     Indication: DRUG USE FOR UNKNOWN INDICATION
     Route: 048

REACTIONS (4)
  - MULTI-ORGAN FAILURE [None]
  - PANCYTOPENIA [None]
  - SYSTEMIC INFLAMMATORY RESPONSE SYNDROME [None]
  - URINARY TRACT INFECTION [None]
